FAERS Safety Report 10548545 (Version 1)
Quarter: 2014Q4

REPORT INFORMATION
  Report Type: Spontaneous
  Country: GR (occurrence: GR)
  Receive Date: 20141028
  Receipt Date: 20141028
  Transmission Date: 20150529
  Serious: Yes (Hospitalization)
  Sender: FDA-Public Use
  Company Number: GR-SA-2014SA145935

PATIENT
  Sex: Female

DRUGS (12)
  1. OXALIPLATIN. [Concomitant]
     Active Substance: OXALIPLATIN
  2. LEUCOVORIN [Concomitant]
     Active Substance: LEUCOVORIN
  3. LEUCOVORIN [Concomitant]
     Active Substance: LEUCOVORIN
  4. 5-FU [Concomitant]
     Active Substance: FLUOROURACIL
     Route: 041
  5. OXALIPLATIN. [Concomitant]
     Active Substance: OXALIPLATIN
  6. ZALTRAP [Suspect]
     Active Substance: ZIV-AFLIBERCEPT
     Indication: NEOPLASM MALIGNANT
     Route: 042
  7. IRINOTECAN [Concomitant]
     Active Substance: IRINOTECAN
  8. IRINOTECAN [Concomitant]
     Active Substance: IRINOTECAN
  9. 5-FU [Concomitant]
     Active Substance: FLUOROURACIL
     Route: 042
  10. 5-FU [Concomitant]
     Active Substance: FLUOROURACIL
     Route: 041
  11. 5-FU [Concomitant]
     Active Substance: FLUOROURACIL
     Route: 042
  12. ZALTRAP [Suspect]
     Active Substance: ZIV-AFLIBERCEPT
     Indication: NEOPLASM MALIGNANT
     Route: 042

REACTIONS (2)
  - Haemolytic anaemia [Unknown]
  - Haematuria [Unknown]
